FAERS Safety Report 16891738 (Version 5)
Quarter: 2021Q4

REPORT INFORMATION
  Report Type: Spontaneous
  Country: CA (occurrence: CA)
  Receive Date: 20191007
  Receipt Date: 20211105
  Transmission Date: 20220303
  Serious: Yes (Other)
  Sender: FDA-Public Use
  Company Number: CA-SAMSUNG BIOEPIS-SB-2019-28952

PATIENT
  Age: 38 Year
  Sex: Female
  Weight: 63 kg

DRUGS (12)
  1. INFLIXIMAB [Suspect]
     Active Substance: INFLIXIMAB
     Indication: Crohn^s disease
     Route: 042
  2. INFLIXIMAB [Suspect]
     Active Substance: INFLIXIMAB
     Route: 042
  3. INFLIXIMAB [Suspect]
     Active Substance: INFLIXIMAB
     Route: 042
  4. CALCIUM [Concomitant]
     Active Substance: CALCIUM
     Indication: Product used for unknown indication
     Dosage: UNKNOWN
     Route: 065
  5. CALCIUM [Concomitant]
     Active Substance: CALCIUM
     Route: 065
  6. DESOXIMETASONE [Concomitant]
     Active Substance: DESOXIMETASONE
     Indication: Product used for unknown indication
     Dosage: UNKNOWN
     Route: 065
  7. PENTASA [Concomitant]
     Active Substance: MESALAMINE
     Indication: Product used for unknown indication
     Dosage: UNKNOWN
     Route: 065
  8. PENTASA [Concomitant]
     Active Substance: MESALAMINE
     Route: 065
  9. PREDNISONE [Concomitant]
     Active Substance: PREDNISONE
     Indication: Product used for unknown indication
     Dosage: UNKNOWN
     Route: 065
  10. PREDNISONE [Concomitant]
     Active Substance: PREDNISONE
     Route: 065
  11. PURINETHOL [Concomitant]
     Active Substance: MERCAPTOPURINE
     Indication: Product used for unknown indication
     Dosage: UNKNOWN
     Route: 065
  12. PURINETHOL [Concomitant]
     Active Substance: MERCAPTOPURINE
     Route: 065

REACTIONS (31)
  - Abdominal pain [Not Recovered/Not Resolved]
  - Blood pressure fluctuation [Recovered/Resolved]
  - Dehydration [Not Recovered/Not Resolved]
  - Diarrhoea [Not Recovered/Not Resolved]
  - Dizziness [Recovered/Resolved]
  - Fatigue [Recovered/Resolved]
  - Haematochezia [Recovered/Resolved]
  - Peripheral coldness [Not Recovered/Not Resolved]
  - Pollakiuria [Not Recovered/Not Resolved]
  - Weight increased [Not Recovered/Not Resolved]
  - Arthralgia [Not Recovered/Not Resolved]
  - Arthritis [Not Recovered/Not Resolved]
  - Condition aggravated [Not Recovered/Not Resolved]
  - Cough [Recovered/Resolved]
  - Joint stiffness [Not Recovered/Not Resolved]
  - Malaise [Not Recovered/Not Resolved]
  - Nasal congestion [Recovered/Resolved]
  - Nausea [Not Recovered/Not Resolved]
  - Pityriasis rosea [Not Recovered/Not Resolved]
  - Rash [Recovered/Resolved]
  - Weight decreased [Not Recovered/Not Resolved]
  - Blood pressure increased [Not Recovered/Not Resolved]
  - Headache [Not Recovered/Not Resolved]
  - Oropharyngeal pain [Recovered/Resolved]
  - Therapeutic product effect incomplete [Not Recovered/Not Resolved]
  - Therapeutic response shortened [Not Recovered/Not Resolved]
  - Therapeutic product effect decreased [Recovered/Resolved]
  - Incorrect product administration duration [Recovered/Resolved]
  - Intentional product use issue [Not Recovered/Not Resolved]
  - Incorrect dose administered [Not Recovered/Not Resolved]
  - Off label use [Not Recovered/Not Resolved]
